FAERS Safety Report 18614456 (Version 2)
Quarter: 2021Q1

REPORT INFORMATION
  Report Type: Report from Study
  Country: DO (occurrence: DO)
  Receive Date: 20201215
  Receipt Date: 20210306
  Transmission Date: 20210419
  Serious: Yes (Hospitalization, Other)
  Sender: FDA-Public Use
  Company Number: NVSC2020DO257913

PATIENT
  Age: 25 Year
  Sex: Female

DRUGS (1)
  1. GILENYA [Suspect]
     Active Substance: FINGOLIMOD HYDROCHLORIDE
     Indication: RELAPSING-REMITTING MULTIPLE SCLEROSIS
     Dosage: 0.5 MG, QD
     Route: 048
     Dates: start: 20200918

REACTIONS (9)
  - Headache [Unknown]
  - Head injury [Unknown]
  - Muscle spasms [Unknown]
  - Spinal disorder [Unknown]
  - Malaise [Unknown]
  - Multiple sclerosis relapse [Unknown]
  - Spinal cord injury [Unknown]
  - Bipolar disorder [Unknown]
  - Limb discomfort [Unknown]

NARRATIVE: CASE EVENT DATE: 20200918
